FAERS Safety Report 13595495 (Version 1)
Quarter: 2017Q2

REPORT INFORMATION
  Report Type: Spontaneous
  Country: US (occurrence: US)
  Receive Date: 20170531
  Receipt Date: 20170531
  Transmission Date: 20170830
  Serious: No
  Sender: FDA-Public Use
  Company Number: US-JNJFOC-20170304344

PATIENT
  Age: 19 Year
  Sex: Female
  Weight: 51.71 kg

DRUGS (2)
  1. MOTRIN IB [Suspect]
     Active Substance: IBUPROFEN
     Indication: HEADACHE
     Route: 048
     Dates: start: 20170301, end: 20170302
  2. MOTRIN IB [Suspect]
     Active Substance: IBUPROFEN
     Route: 048

REACTIONS (2)
  - Incorrect dose administered [Unknown]
  - Expired product administered [Unknown]

NARRATIVE: CASE EVENT DATE: 20170301
